FAERS Safety Report 19679243 (Version 1)
Quarter: 2021Q3

REPORT INFORMATION
  Report Type: Spontaneous
  Country: US (occurrence: US)
  Receive Date: 20210810
  Receipt Date: 20210810
  Transmission Date: 20211014
  Serious: No
  Sender: FDA-Public Use
  Company Number: US-APOTEX-2020AP016672

PATIENT
  Age: 40 Year
  Sex: Male

DRUGS (1)
  1. PAROXETINE. [Suspect]
     Active Substance: PAROXETINE
     Indication: PARASOMNIA
     Dosage: UNK
     Route: 065

REACTIONS (2)
  - Libido decreased [Unknown]
  - Product use in unapproved indication [Unknown]
